FAERS Safety Report 23769383 (Version 1)
Quarter: 2024Q2

REPORT INFORMATION
  Report Type: Spontaneous
  Country: US (occurrence: None)
  Receive Date: 20240421
  Receipt Date: 20240421
  Transmission Date: 20240715
  Serious: Yes (Hospitalization)
  Sender: FDA-Public Use
  Company Number: None

PATIENT
  Age: 74 Year
  Sex: Male

DRUGS (2)
  1. CEFEPIME HYDROCHLORIDE [Suspect]
     Active Substance: CEFEPIME HYDROCHLORIDE
     Indication: Acute kidney injury
     Dosage: OTHER STRENGTH : 2GM/VIL ;?
     Dates: start: 20221012, end: 20230620
  2. DAPTOMYCIN [Suspect]
     Active Substance: DAPTOMYCIN
     Dosage: OTHER STRENGTH : 500MG/VIL??THERAPY STOPPED ON 06/02/202?
     Dates: start: 20230520

REACTIONS (5)
  - Nephritis [None]
  - Acute kidney injury [None]
  - Pseudomonas test positive [None]
  - Proteus test positive [None]
  - Therapy interrupted [None]

NARRATIVE: CASE EVENT DATE: 20230626
